FAERS Safety Report 17984874 (Version 2)
Quarter: 2020Q3

REPORT INFORMATION
  Report Type: Spontaneous
  Country: JP (occurrence: JP)
  Receive Date: 20200706
  Receipt Date: 20200722
  Transmission Date: 20201103
  Serious: No
  Sender: FDA-Public Use
  Company Number: JP-ALLERGAN-2025265US

PATIENT
  Sex: Male

DRUGS (1)
  1. LINACLOTIDE ? BP [Suspect]
     Active Substance: LINACLOTIDE
     Indication: CONSTIPATION
     Dosage: UNKNOWN FREQUENCY, AFTER BREAKFAST
     Route: 048

REACTIONS (3)
  - Off label use [Unknown]
  - Product use issue [Unknown]
  - Product storage error [Unknown]
